FAERS Safety Report 10312787 (Version 1)
Quarter: 2014Q3

REPORT INFORMATION
  Report Type: Spontaneous
  Country: KR (occurrence: None)
  Receive Date: 20140716
  Receipt Date: 20140716
  Transmission Date: 20150326
  Serious: Yes (Other)
  Sender: FDA-Public Use
  Company Number: 2014KP00705

PATIENT
  Age: 61 Year
  Sex: Male

DRUGS (1)
  1. TERBINAFINE [Suspect]
     Active Substance: TERBINAFINE
     Indication: ONYCHOMYCOSIS

REACTIONS (4)
  - Hepatic function abnormal [None]
  - Blood alkaline phosphatase increased [None]
  - Pustular psoriasis [None]
  - Aspartate aminotransferase increased [None]
